FAERS Safety Report 6407036-X (Version None)
Quarter: 2009Q4

REPORT INFORMATION
  Report Type: 
  Country: None (occurrence: None)
  Receive Date: 20091020
  Receipt Date: 20091012
  Transmission Date: 20100525
  Serious: Yes (Hospitalization)
  Sender: FDA-Public Use
  Company Number: PHHO2008IE00704

PATIENT
  Sex: Female
  Weight: 81.7 kg

DRUGS (1)
  1. CGS 20267 T30748+TAB [Suspect]
     Indication: BREAST CANCER
     Dosage: 2.5 MG, QD
     Route: 048
     Dates: start: 20061018, end: 20080128

REACTIONS (7)
  - ATAXIA [None]
  - DEAFNESS [None]
  - DIZZINESS [None]
  - GAIT DISTURBANCE [None]
  - HEADACHE [None]
  - INNER EAR DISORDER [None]
  - OEDEMA PERIPHERAL [None]
